FAERS Safety Report 18741108 (Version 1)
Quarter: 2021Q1

REPORT INFORMATION
  Report Type: Spontaneous
  Country: US (occurrence: US)
  Receive Date: 20210114
  Receipt Date: 20210114
  Transmission Date: 20210419
  Serious: Yes (Hospitalization)
  Sender: FDA-Public Use
  Company Number: None

PATIENT
  Sex: Female

DRUGS (14)
  1. VORICONAZOLE. [Concomitant]
     Active Substance: VORICONAZOLE
  2. FOLLISTIM [Concomitant]
     Active Substance: FOLLITROPIN
  3. CLOTRIMAZOLE. [Concomitant]
     Active Substance: CLOTRIMAZOLE
  4. FOLBIC [Concomitant]
     Active Substance: CYANOCOBALAMIN\FOLIC ACID\PYRIDOXINE
  5. MEDROXYPROGESTERONE [Concomitant]
     Active Substance: MEDROXYPROGESTERONE
  6. AMLODIPINE [Concomitant]
     Active Substance: AMLODIPINE BESYLATE
  7. ONDANSETRON [Concomitant]
     Active Substance: ONDANSETRON
  8. POSACONAZOLE [Concomitant]
     Active Substance: POSACONAZOLE
  9. LEVOFLOXACIN. [Concomitant]
     Active Substance: LEVOFLOXACIN
  10. USODIOL [Concomitant]
  11. GANIRELIX [Suspect]
     Active Substance: GANIRELIX
     Indication: INFERTILITY FEMALE
     Route: 058
     Dates: start: 20200923
  12. CRESEMBA [Concomitant]
     Active Substance: ISAVUCONAZONIUM SULFATE
  13. VALACYCLOVIR [Concomitant]
     Active Substance: VALACYCLOVIR HYDROCHLORIDE
  14. LEUPROLIDE [Concomitant]
     Active Substance: LEUPROLIDE

REACTIONS (2)
  - Transplant [None]
  - Leukaemia [None]
